FAERS Safety Report 5471848-X (Version None)
Quarter: 2007Q3

REPORT INFORMATION
  Report Type: 
  Country: None (occurrence: None)
  Receive Date: 20070928
  Receipt Date: 20070731
  Transmission Date: 20080115
  Serious: Yes (Other)
  Sender: FDA-Public Use
  Company Number: US-BRISTOL-MYERS SQUIBB COMPANY-13827050

PATIENT
  Age: 78 Year
  Sex: Female
  Weight: 118 kg

DRUGS (3)
  1. DEFINITY [Suspect]
     Indication: ECHOCARDIOGRAM
     Dosage: DEFINITY 1.5 ML DILUTED IN 8 ML OF NORMAL SALINE
     Route: 042
     Dates: start: 20070626, end: 20070626
  2. TYLENOL (CAPLET) [Concomitant]
  3. DARVOCET [Concomitant]

REACTIONS (5)
  - BLOOD PRESSURE INCREASED [None]
  - DYSPNOEA [None]
  - HYPERHIDROSIS [None]
  - MUSCULOSKELETAL PAIN [None]
  - PAIN [None]
